FAERS Safety Report 20776976 (Version 1)
Quarter: 2022Q2

REPORT INFORMATION
  Report Type: Other
  Country: DE (occurrence: None)
  Receive Date: 20220502
  Receipt Date: 20220502
  Transmission Date: 20220721
  Serious: No
  Sender: FDA-Public Use
  Company Number: DE-ROCHE-3013986

PATIENT
  Age: 32 Year
  Sex: Female

DRUGS (9)
  1. OCRELIZUMAB [Suspect]
     Active Substance: OCRELIZUMAB
     Indication: Relapsing-remitting multiple sclerosis
     Route: 042
     Dates: start: 20220110
  2. CYMBALTA [Concomitant]
     Active Substance: DULOXETINE HYDROCHLORIDE
     Indication: Depression
     Dosage: 30/60 MG
     Route: 048
     Dates: start: 202112
  3. CHOLECALCIFEROL [Concomitant]
     Active Substance: CHOLECALCIFEROL
     Indication: Vitamin D deficiency
     Dosage: ONGOING
     Route: 048
     Dates: start: 20190107
  4. COMIRNATY [Concomitant]
     Active Substance: TOZINAMERAN
     Dosage: INDICATION: SARS-CO V-2-VACCINATION
     Route: 030
     Dates: start: 20220110, end: 20220110
  5. PREDNISOLONE [Concomitant]
     Active Substance: PREDNISOLONE
     Indication: Premedication
     Route: 042
     Dates: start: 20220110, end: 20220110
  6. PREDNISOLONE [Concomitant]
     Active Substance: PREDNISOLONE
     Route: 042
     Dates: start: 20220124, end: 20220124
  7. EBASTINE [Concomitant]
     Active Substance: EBASTINE
     Indication: Premedication
     Dosage: IN THE MORNING AND IN THE EVENING, FOR 3 DAYS.
     Route: 048
     Dates: start: 20220109, end: 20220111
  8. EBASTINE [Concomitant]
     Active Substance: EBASTINE
     Dosage: IN THE MORNING AND IN THE EVENING, FOR 3 DAYS.
     Route: 048
     Dates: start: 20220123, end: 20220125
  9. NABIXIMOLS [Concomitant]
     Active Substance: NABIXIMOLS
     Dates: start: 20220113

REACTIONS (3)
  - Infusion related reaction [Unknown]
  - Lymphocyte count decreased [Unknown]
  - Herpes zoster [Unknown]

NARRATIVE: CASE EVENT DATE: 20220124
